FAERS Safety Report 15113802 (Version 1)
Quarter: 2018Q3

REPORT INFORMATION
  Report Type: Spontaneous
  Country: US (occurrence: US)
  Receive Date: 20180706
  Receipt Date: 20180706
  Transmission Date: 20181010
  Serious: No
  Sender: FDA-Public Use
  Company Number: US-JNJFOC-20180617140

PATIENT
  Sex: Male
  Weight: 72.2 kg

DRUGS (2)
  1. MENS ROGAINE EXTRA STRENGTH [Suspect]
     Active Substance: MINOXIDIL
     Indication: ALOPECIA
     Route: 061
  2. MENS ROGAINE EXTRA STRENGTH [Suspect]
     Active Substance: MINOXIDIL
     Route: 061

REACTIONS (6)
  - Skin irritation [Recovered/Resolved]
  - Skin swelling [Recovering/Resolving]
  - Underdose [Unknown]
  - Erythema [Recovering/Resolving]
  - Rash [Recovered/Resolved]
  - Inappropriate schedule of drug administration [Unknown]
